FAERS Safety Report 25623731 (Version 1)
Quarter: 2025Q3

REPORT INFORMATION
  Report Type: Spontaneous
  Country: US (occurrence: US)
  Receive Date: 20250730
  Receipt Date: 20250730
  Transmission Date: 20251020
  Serious: No
  Sender: ALEMBIC
  Company Number: US-ALEMBIC PHARMACUETICALS LIMITED-2025SCAL000955

PATIENT

DRUGS (2)
  1. DOXYCYCLINE [Suspect]
     Active Substance: DOXYCYCLINE
     Indication: Abscess limb
     Route: 048
     Dates: start: 202502
  2. DOXYCYCLINE [Suspect]
     Active Substance: DOXYCYCLINE
     Route: 048
     Dates: start: 20250717

REACTIONS (1)
  - Product storage error [Unknown]
